FAERS Safety Report 18090462 (Version 4)
Quarter: 2020Q3

REPORT INFORMATION
  Report Type: Report from Study
  Country: None (occurrence: CH)
  Receive Date: 20200730
  Receipt Date: 20200827
  Transmission Date: 20201103
  Serious: Yes (Death)
  Sender: FDA-Public Use
  Company Number: CH-ABBVIE-20K-151-3503598-00

PATIENT
  Age: 67 Year
  Sex: Female

DRUGS (3)
  1. DUODOPA [Suspect]
     Active Substance: CARBIDOPA\LEVODOPA
     Dosage: MD: 10.5 ML, CONTINUOUS RATE DAY: 4.2 ML/H, CONTINUOUS RATE NIGHT: 0 ML/H, ED: 2 ML
     Route: 050
     Dates: start: 20190911, end: 20200203
  2. DUODOPA [Suspect]
     Active Substance: CARBIDOPA\LEVODOPA
     Dosage: MD: 10.5 ML, CONTINUOUS RATE DAY: 4.3 ML/H, CONTINUOUS RATE NIGHT: 0 ML/H, ED: 2 ML
     Route: 050
     Dates: start: 20200203
  3. DUODOPA [Suspect]
     Active Substance: CARBIDOPA\LEVODOPA
     Indication: PARKINSON^S DISEASE
     Dosage: 1 CASSETTE PER DAY
     Route: 050
     Dates: start: 20170920, end: 20190911

REACTIONS (1)
  - Cardiac failure [Fatal]

NARRATIVE: CASE EVENT DATE: 20200727
